FAERS Safety Report 19539117 (Version 2)
Quarter: 2021Q3

REPORT INFORMATION
  Report Type: Spontaneous
  Country: GB (occurrence: GB)
  Receive Date: 20210713
  Receipt Date: 20210902
  Transmission Date: 20211014
  Serious: Yes (Hospitalization, Other)
  Sender: FDA-Public Use
  Company Number: GB-AMGEN-GBRSP2021103842

PATIENT
  Age: 25 Year
  Sex: Female
  Weight: 78 kg

DRUGS (6)
  1. AMGEVITA [Suspect]
     Active Substance: ADALIMUMAB
     Indication: PSORIASIS
     Dosage: 40 MILLIGRAM, Q2WK
     Route: 065
     Dates: start: 20190410, end: 20190722
  2. AMGEVITA [Suspect]
     Active Substance: ADALIMUMAB
     Dosage: 40 MILLIGRAM, Q2WK
     Route: 065
     Dates: start: 20191107, end: 20210413
  3. OESTRADIOL [ESTRADIOL] [Concomitant]
     Active Substance: ESTRADIOL
     Dosage: UNK
     Dates: start: 20130115
  4. PARACETAMOL [Concomitant]
     Active Substance: ACETAMINOPHEN
     Dosage: UNK
     Dates: start: 20141001
  5. COCODAMOL [Concomitant]
     Active Substance: ACETAMINOPHEN\CODEINE PHOSPHATE
     Dosage: UNK
     Dates: start: 20140901
  6. DESOGESTREL [Concomitant]
     Active Substance: DESOGESTREL
     Dosage: UNK
     Dates: start: 20171101

REACTIONS (4)
  - Fall [Unknown]
  - Joint injury [Unknown]
  - Maternal exposure during pregnancy [Recovered/Resolved]
  - Foetal hypokinesia [Unknown]

NARRATIVE: CASE EVENT DATE: 20201027
